FAERS Safety Report 14354964 (Version 1)
Quarter: 2018Q1

REPORT INFORMATION
  Report Type: Spontaneous
  Country: US (occurrence: US)
  Receive Date: 20180104
  Receipt Date: 20180104
  Transmission Date: 20180509
  Serious: Yes (Disabling)
  Sender: FDA-Public Use
  Company Number: None

PATIENT
  Age: 58 Year
  Sex: Female
  Weight: 105.75 kg

DRUGS (21)
  1. CYCLOBENZAPRINE. [Suspect]
     Active Substance: CYCLOBENZAPRINE
     Indication: SLEEP DISORDER
     Dosage: QUANTITY:1 TABLET(S); AT BEDTIME?
     Route: 048
     Dates: start: 20171023
  2. METHOTREXATE. [Concomitant]
     Active Substance: METHOTREXATE
  3. ASA [Concomitant]
     Active Substance: ASPIRIN
  4. MAGNESIUM OXIDE. [Concomitant]
     Active Substance: MAGNESIUM OXIDE
  5. BUSPAR [Concomitant]
     Active Substance: BUSPIRONE HYDROCHLORIDE
  6. SYNTHROID [Concomitant]
     Active Substance: LEVOTHYROXINE SODIUM
  7. PREDNISONE. [Concomitant]
     Active Substance: PREDNISONE
  8. HUMIRA [Concomitant]
     Active Substance: ADALIMUMAB
  9. RANITIDINE. [Concomitant]
     Active Substance: RANITIDINE
  10. FLEXERIL [Concomitant]
     Active Substance: CYCLOBENZAPRINE HYDROCHLORIDE
  11. FLONASE [Concomitant]
     Active Substance: FLUTICASONE PROPIONATE
  12. FOLIC ACID. [Concomitant]
     Active Substance: FOLIC ACID
  13. VITAMIN D3 [Concomitant]
     Active Substance: CHOLECALCIFEROL
  14. EFFEXOR [Concomitant]
     Active Substance: VENLAFAXINE HYDROCHLORIDE
  15. DOCUSATE [Concomitant]
     Active Substance: DOCUSATE
  16. SENIOR MULTIPLE VITAMIN [Concomitant]
  17. CALCIUM [Concomitant]
     Active Substance: CALCIUM
  18. PSYLLIUM [Concomitant]
     Active Substance: PLANTAGO SEED
  19. VALTREX [Concomitant]
     Active Substance: VALACYCLOVIR HYDROCHLORIDE
  20. CETIRIZINE [Concomitant]
     Active Substance: CETIRIZINE HYDROCHLORIDE
  21. FISH OIL/OMEGA 3S [Concomitant]

REACTIONS (2)
  - Product substitution issue [None]
  - Therapy non-responder [None]

NARRATIVE: CASE EVENT DATE: 20180101
